FAERS Safety Report 10082904 (Version 1)
Quarter: 2014Q2

REPORT INFORMATION
  Report Type: Report from Study
  Country: BR (occurrence: BR)
  Receive Date: 20140417
  Receipt Date: 20140417
  Transmission Date: 20141212
  Serious: Yes (Other)
  Sender: FDA-Public Use
  Company Number: BR-ROCHE-1382860

PATIENT
  Age: 59 Year
  Sex: Female
  Weight: 76 kg

DRUGS (2)
  1. PEGASYS [Suspect]
     Indication: HEPATITIS C
     Dosage: INJECTION
     Route: 065
     Dates: start: 20140404, end: 201404
  2. RIBAVIRIN [Suspect]
     Indication: HEPATITIS C
     Dosage: 2 TABLETS IN THE MORNING AND 3 AT NIGHT
     Route: 065
     Dates: start: 20140404, end: 201404

REACTIONS (2)
  - Constipation [Unknown]
  - Renal disorder [Unknown]
